FAERS Safety Report 7343626-8 (Version None)
Quarter: 2011Q1

REPORT INFORMATION
  Report Type: 
  Country: None (occurrence: None)
  Receive Date: 20110310
  Receipt Date: 20100802
  Transmission Date: 20110831
  Serious: No
  Sender: FDA-Public Use
  Company Number: A0873415A

PATIENT
  Age: 66 Year
  Sex: Female

DRUGS (2)
  1. NICOTINE POLACRILEX [Suspect]
  2. NICORETTE (MINT) [Suspect]
     Dates: start: 20100731, end: 20100731

REACTIONS (2)
  - ORAL DISCOMFORT [None]
  - STOMATITIS [None]
